FAERS Safety Report 5587808-4 (Version None)
Quarter: 2007Q4

REPORT INFORMATION
  Report Type: 
  Country: None (occurrence: None)
  Receive Date: 20071211
  Receipt Date: 20070831
  Transmission Date: 20080405
  Serious: No
  Sender: FDA-Public Use
  Company Number: 002#2#2007-00190

PATIENT
  Age: 82 Year
  Sex: Female
  Weight: 39.0093 kg

DRUGS (4)
  1. NEUPRO [Suspect]
     Indication: DRUG USE FOR UNKNOWN INDICATION
     Dosage: MG/24H, 1 IN 1; TRANSDERMAL
     Route: 062
  2. NIMENDA [Concomitant]
  3. ARICEPT [Concomitant]
  4. SINEMET [Concomitant]

REACTIONS (1)
  - SOMNOLENCE [None]
